FAERS Safety Report 4635961-9 (Version None)
Quarter: 2005Q1

REPORT INFORMATION
  Report Type: 
  Country: None (occurrence: None)
  Receive Date: 20050325
  Receipt Date: 20041220
  Transmission Date: 20050727
  Serious: No
  Sender: FDA-Public Use
  Company Number: USA041286708

PATIENT
  Age: 57 Year
  Sex: Female

DRUGS (4)
  1. FORTEO [Suspect]
     Indication: OSTEOPOROSIS
     Dosage: 20 UG DAY
     Dates: start: 20041101
  2. NEXIUM [Concomitant]
  3. ESTRADIOL [Concomitant]
  4. KLONOPIN [Concomitant]

REACTIONS (3)
  - ANXIETY [None]
  - DYSPNOEA [None]
  - HEART RATE INCREASED [None]
